FAERS Safety Report 8881534 (Version 2)
Quarter: 2012Q4

REPORT INFORMATION
  Report Type: 
  Country: US (occurrence: US)
  Receive Date: 20121101
  Receipt Date: 20121227
  Transmission Date: 20130627
  Serious: No
  Sender: FDA-Public Use
  Company Number: US-TEVA-367826USA

PATIENT
  Age: 57 Year
  Sex: Female
  Weight: 104.87 kg

DRUGS (9)
  1. NUVIGIL [Suspect]
     Indication: SLEEP APNOEA SYNDROME
     Dosage: 150 Milligram Daily; Q AM
     Route: 048
     Dates: start: 20121026
  2. GLIPIZIDE [Concomitant]
     Indication: DIABETES MELLITUS
     Dosage: 10 Milligram Daily;
     Route: 048
     Dates: start: 2011
  3. FUROSEMIDE [Concomitant]
     Indication: HYPERTENSION
     Dosage: 80 Milligram Daily;
     Route: 048
  4. TOPROL XL [Concomitant]
     Indication: HYPERTENSION
     Dosage: 100 Milligram Daily;
     Route: 048
  5. METFORMIN [Concomitant]
     Indication: DIABETES MELLITUS
     Dosage: 1000 Milligram Daily;
     Route: 048
  6. LORTAB [Concomitant]
     Indication: PAIN
     Dosage: 10/500mg PRN
     Route: 048
  7. DEPAKOTE ER [Concomitant]
     Dosage: 1500 Milligram Daily;
     Route: 048
  8. METHADONE [Concomitant]
     Indication: PAIN
     Dosage: 15 Milligram Daily;
     Route: 048
     Dates: start: 2011
  9. XANAX [Concomitant]
     Indication: PAIN
     Dosage: 1.5 Milligram Daily;
     Route: 048
     Dates: start: 2000

REACTIONS (2)
  - Blood glucose decreased [Not Recovered/Not Resolved]
  - Weight decreased [Not Recovered/Not Resolved]
